FAERS Safety Report 21759083 (Version 1)
Quarter: 2022Q4

REPORT INFORMATION
  Report Type: Spontaneous
  Country: US (occurrence: US)
  Receive Date: 20221221
  Receipt Date: 20221221
  Transmission Date: 20230113
  Serious: No
  Sender: FDA-Public Use
  Company Number: US-ASCENDIS PHARMA-2022US000828

PATIENT

DRUGS (1)
  1. SKYTROFA [Suspect]
     Active Substance: LONAPEGSOMATROPIN-TCGD
     Indication: Growth hormone deficiency
     Dosage: UNK
     Route: 065

REACTIONS (5)
  - Cellulitis [Unknown]
  - Myalgia [Unknown]
  - Injection site erythema [Unknown]
  - Arthralgia [Unknown]
  - Influenza [Unknown]
